FAERS Safety Report 12120292 (Version 2)
Quarter: 2016Q1

REPORT INFORMATION
  Report Type: Spontaneous
  Country: CA (occurrence: CA)
  Receive Date: 20160226
  Receipt Date: 20160226
  Transmission Date: 20160526
  Serious: Yes (Hospitalization, Other)
  Sender: FDA-Public Use
  Company Number: CA-TEVA-634839USA

PATIENT
  Age: 14 Month
  Sex: Female

DRUGS (12)
  1. PIPERACILLIN [Concomitant]
     Active Substance: PIPERACILLIN
     Indication: INFECTIOUS COLITIS
  2. MEROPENEM. [Concomitant]
     Active Substance: MEROPENEM
     Indication: INFECTIOUS COLITIS
  3. VANCOMYCIN [Concomitant]
     Active Substance: VANCOMYCIN
     Indication: INFECTIOUS COLITIS
  4. FLUCONAZOLE. [Concomitant]
     Active Substance: FLUCONAZOLE
     Indication: INFECTIOUS COLITIS
  5. DOXORUBICIN [Suspect]
     Active Substance: DOXORUBICIN
  6. CYCLOPHOSPHAMIDE. [Suspect]
     Active Substance: CYCLOPHOSPHAMIDE
     Indication: NEUROBLASTOMA
  7. DOXORUBICIN [Suspect]
     Active Substance: DOXORUBICIN
     Indication: NEUROBLASTOMA
  8. CISPLATIN. [Suspect]
     Active Substance: CISPLATIN
     Indication: NEUROBLASTOMA
     Dosage: FOR 4 CONSECUTIVE DAYS
  9. METRONIDAZOLE. [Concomitant]
     Active Substance: METRONIDAZOLE
     Indication: INFECTIOUS COLITIS
  10. TENIPOSIDE. [Suspect]
     Active Substance: TENIPOSIDE
     Indication: NEUROBLASTOMA
  11. VINCRISTINE [Suspect]
     Active Substance: VINCRISTINE
     Indication: NEUROBLASTOMA
  12. VINCRISTINE [Suspect]
     Active Substance: VINCRISTINE
     Indication: NEUROBLASTOMA

REACTIONS (2)
  - Pancytopenia [Unknown]
  - Histiocytosis haematophagic [Not Recovered/Not Resolved]
